FAERS Safety Report 9746411 (Version 1)
Quarter: 2013Q4

REPORT INFORMATION
  Report Type: Spontaneous
  Country: FR (occurrence: FR)
  Receive Date: 20131211
  Receipt Date: 20131211
  Transmission Date: 20140711
  Serious: Yes (Other)
  Sender: FDA-Public Use
  Company Number: FR-GLAXOSMITHKLINE-B0950266A

PATIENT
  Age: 75 Year
  Sex: Female

DRUGS (13)
  1. ZELITREX [Suspect]
     Indication: PRODUCT USED FOR UNKNOWN INDICATION
     Dosage: 1000MG THREE TIMES PER DAY
     Route: 048
     Dates: start: 20131101, end: 20131107
  2. VFEND [Suspect]
     Indication: ASPERGILLUS INFECTION
     Dosage: 450MG PER DAY
     Route: 048
     Dates: start: 20131106
  3. CANCIDAS [Suspect]
     Indication: ASPERGILLUS INFECTION
     Dosage: 50MG PER DAY
     Route: 042
     Dates: start: 20131106
  4. VANCOMYCINE [Concomitant]
     Dates: start: 20131101, end: 20131105
  5. TIENAM [Concomitant]
     Dates: start: 20131101, end: 20131105
  6. CARDENSIEL [Concomitant]
  7. HYPERIUM [Concomitant]
  8. AMLOR [Concomitant]
  9. ATARAX [Concomitant]
  10. INEXIUM [Concomitant]
  11. CORTANCYL [Concomitant]
  12. OXYCONTIN [Concomitant]
  13. TRANSIPEG [Concomitant]

REACTIONS (1)
  - Renal failure [Not Recovered/Not Resolved]
